FAERS Safety Report 8825486 (Version 2)
Quarter: 2012Q4

REPORT INFORMATION
  Report Type: 
  Country: TW (occurrence: TW)
  Receive Date: 20121004
  Receipt Date: 20121106
  Transmission Date: 20130627
  Serious: Yes (Death, Hospitalization)
  Sender: FDA-Public Use
  Company Number: TW-BAXTER-2012BAX018884

PATIENT
  Sex: Female

DRUGS (1)
  1. DIANEAL PD-2, PERITONEAL DIALYSIS SOLUTION WITH 2.5% DEXTROSE ^BAXTER^ [Suspect]
     Indication: CAPD
     Route: 033

REACTIONS (2)
  - Post procedural infection [Fatal]
  - Leukaemia [Unknown]
